FAERS Safety Report 6439959-X (Version None)
Quarter: 2009Q4

REPORT INFORMATION
  Report Type: 
  Country: None (occurrence: None)
  Receive Date: 20091112
  Receipt Date: 20091112
  Transmission Date: 20100525
  Serious: Yes (Hospitalization)
  Sender: FDA-Public Use
  Company Number: None

PATIENT
  Sex: Female
  Weight: 52.1637 kg

DRUGS (1)
  1. FOSAMAX [Suspect]
     Indication: BONE DENSITY DECREASED
     Dosage: ONCE WEEKLY; HAVE USED PRODUCT FOR YEARS

REACTIONS (1)
  - PAIN IN JAW [None]
